FAERS Safety Report 4877460-5 (Version None)
Quarter: 2006Q1

REPORT INFORMATION
  Report Type: 
  Country: None (occurrence: None)
  Receive Date: 20060111
  Receipt Date: 20060105
  Transmission Date: 20060701
  Serious: Yes (Disabling)
  Sender: FDA-Public Use
  Company Number: JP-JNJFOC-20060100923

PATIENT
  Age: 66 Year
  Sex: Female

DRUGS (3)
  1. TAVANIC 500 [Suspect]
     Indication: TOOTH INFECTION
     Route: 048
     Dates: start: 20051208, end: 20051210
  2. TAXOL [Interacting]
     Indication: BREAST CANCER
  3. DEXAMETHASONE [Concomitant]
     Dates: end: 20051214

REACTIONS (2)
  - DRUG INTERACTION [None]
  - TENDONITIS [None]
